FAERS Safety Report 20447655 (Version 2)
Quarter: 2022Q1

REPORT INFORMATION
  Report Type: Spontaneous
  Country: IR (occurrence: IR)
  Receive Date: 20220209
  Receipt Date: 20220329
  Transmission Date: 20220423
  Serious: Yes (Hospitalization, Other)
  Sender: FDA-Public Use
  Company Number: IR-MLMSERVICE-20220125-3335606-1

PATIENT

DRUGS (8)
  1. OXALIPLATIN [Suspect]
     Active Substance: OXALIPLATIN
     Indication: T-cell lymphoma
     Dosage: UNK, 3 (CYCLICAL)
     Route: 065
  2. OXALIPLATIN [Suspect]
     Active Substance: OXALIPLATIN
     Dosage: 100 MILLIGRAM/SQ. METER IN 500 ML DEXTROSE 5% OVER  2H
     Route: 042
     Dates: start: 2021
  3. OXALIPLATIN [Suspect]
     Active Substance: OXALIPLATIN
     Dosage: 300 MILLIGRAM/SQ. METER, 3 (CYCLICAL) IN 500 ML DEXTROSE 5% OVER 2H
     Route: 042
     Dates: start: 2020
  4. GEMCITABINE [Concomitant]
     Active Substance: GEMCITABINE
     Indication: T-cell lymphoma
     Dosage: UNK, 3 (CYCLICAL)
     Route: 065
  5. GEMCITABINE [Concomitant]
     Active Substance: GEMCITABINE
     Dosage: 1000 MILLIGRAM/SQ. METER IN 500 ML NORMAL SALINE WITH THE RATE OF 10 MILLIGRAM/ SQ. METER/ MIN
     Route: 042
     Dates: start: 2021
  6. GEMCITABINE [Concomitant]
     Active Substance: GEMCITABINE
     Dosage: 3000 MILLIGRAM/SQ. METER, 3 (CYCLICAL) IN 500 ML NORMAL SALINE WITH THE RATE OF 10 MG/ SQ. M/ MIN
     Route: 042
     Dates: start: 2020
  7. SODIUM CHLORIDE [Concomitant]
     Active Substance: SODIUM CHLORIDE
     Indication: T-cell lymphoma
     Dosage: 500 MILLILITER
     Route: 042
     Dates: start: 2020
  8. DEXTROSE [Concomitant]
     Active Substance: DEXTROSE
     Indication: T-cell lymphoma
     Dosage: 500 MILLILITER
     Route: 042
     Dates: start: 2020

REACTIONS (2)
  - Axonal and demyelinating polyneuropathy [Recovering/Resolving]
  - Peripheral sensory neuropathy [Recovering/Resolving]

NARRATIVE: CASE EVENT DATE: 20210101
